FAERS Safety Report 5872116-4 (Version None)
Quarter: 2008Q3

REPORT INFORMATION
  Report Type: 
  Country: None (occurrence: None)
  Receive Date: 20080905
  Receipt Date: 20080901
  Transmission Date: 20090109
  Serious: Yes (Other)
  Sender: FDA-Public Use
  Company Number: B0535653A

PATIENT
  Age: 17 Year
  Sex: Female

DRUGS (2)
  1. CLENIL [Suspect]
     Indication: ASTHMA
     Dosage: 200MCG UNKNOWN
     Route: 055
     Dates: start: 20080807, end: 20080807
  2. SALBUTAMOL [Concomitant]
     Route: 055

REACTIONS (4)
  - TACHYCARDIA [None]
  - TREMOR [None]
  - URTICARIA [None]
  - WHEEZING [None]
